FAERS Safety Report 16315287 (Version 3)
Quarter: 2019Q2

REPORT INFORMATION
  Report Type: Report from Study
  Country: US (occurrence: US)
  Receive Date: 20190515
  Receipt Date: 20190613
  Transmission Date: 20190711
  Serious: No
  Sender: FDA-Public Use
  Company Number: PHEH2019US020427

PATIENT
  Age: 58 Year
  Sex: Female

DRUGS (1)
  1. COSENTYX [Suspect]
     Active Substance: SECUKINUMAB
     Indication: PSORIASIS
     Route: 065

REACTIONS (9)
  - Memory impairment [Unknown]
  - Headache [Unknown]
  - Skin exfoliation [Not Recovered/Not Resolved]
  - Arthralgia [Unknown]
  - Pruritus [Not Recovered/Not Resolved]
  - Scab [Unknown]
  - Needle issue [Unknown]
  - Concomitant disease aggravated [Unknown]
  - Peripheral swelling [Unknown]
